FAERS Safety Report 9108800 (Version 1)
Quarter: 2013Q1

REPORT INFORMATION
  Report Type: Spontaneous
  Country: US (occurrence: US)
  Receive Date: 20130222
  Receipt Date: 20130222
  Transmission Date: 20140127
  Serious: Yes (Hospitalization)
  Sender: FDA-Public Use
  Company Number: US-PFIZER INC-2013063728

PATIENT
  Age: 72 Year
  Sex: Male
  Weight: 56.69 kg

DRUGS (10)
  1. BOSULIF [Suspect]
     Indication: LEUKAEMIA
     Dosage: UNK
  2. ALBUTEROL [Concomitant]
     Dosage: UNK
  3. ASACOL [Concomitant]
     Dosage: UNK
  4. ATENOLOL [Concomitant]
     Dosage: UNK
  5. CENTRUM [Concomitant]
     Dosage: UNK
  6. HYDROCHLOROTHIAZID [Concomitant]
     Dosage: UNK
  7. HYDROCODONE [Concomitant]
     Dosage: UNK
  8. KLOR-CON [Concomitant]
     Dosage: UNK
  9. MAGNESIUM [Concomitant]
     Dosage: UNK
  10. SIMVASTATIN [Concomitant]
     Dosage: UNK

REACTIONS (1)
  - Rash [Unknown]
